FAERS Safety Report 17301248 (Version 1)
Quarter: 2020Q1

REPORT INFORMATION
  Report Type: Report from Study
  Country: CA (occurrence: CA)
  Receive Date: 20200122
  Receipt Date: 20200122
  Transmission Date: 20200409
  Serious: Yes (Other)
  Sender: FDA-Public Use
  Company Number: NVSC2020CA013507

PATIENT
  Sex: Female

DRUGS (5)
  1. AZITHROMYCIN ANHYDROUS. [Suspect]
     Active Substance: AZITHROMYCIN ANHYDROUS
     Indication: ATYPICAL MYCOBACTERIAL INFECTION
     Route: 065
  2. METHOTREXATE. [Suspect]
     Active Substance: METHOTREXATE
     Indication: RHEUMATOID ARTHRITIS
     Route: 065
  3. LEFLUNOMIDE. [Suspect]
     Active Substance: LEFLUNOMIDE
     Indication: PRODUCT USED FOR UNKNOWN INDICATION
     Route: 065
  4. DEPO-MEDROL [Suspect]
     Active Substance: METHYLPREDNISOLONE ACETATE
     Indication: RHEUMATOID ARTHRITIS
     Route: 065
  5. PLAQUENIL [Suspect]
     Active Substance: HYDROXYCHLOROQUINE SULFATE
     Indication: PRODUCT USED FOR UNKNOWN INDICATION
     Dosage: UNK (200 MG OD)
     Route: 065

REACTIONS (32)
  - Cough [Not Recovered/Not Resolved]
  - Arthritis [Unknown]
  - Synovitis [Unknown]
  - Diarrhoea [Unknown]
  - Rheumatoid arthritis [Unknown]
  - Osteoarthritis [Unknown]
  - Arthralgia [Unknown]
  - Upper respiratory tract infection [Unknown]
  - Ligament sprain [Unknown]
  - Paraesthesia [Unknown]
  - Drug ineffective [Unknown]
  - Nightmare [Recovering/Resolving]
  - Pain [Unknown]
  - Gout [Unknown]
  - Bronchiectasis [Unknown]
  - Chest pain [Unknown]
  - Rash [Unknown]
  - Bacterial infection [Unknown]
  - Rheumatoid factor [Unknown]
  - Atypical mycobacterial infection [Unknown]
  - Erythema [Unknown]
  - Underweight [Unknown]
  - Middle lobe syndrome [Unknown]
  - Grip strength decreased [Unknown]
  - Infective exacerbation of bronchiectasis [Unknown]
  - Drug intolerance [Unknown]
  - Peripheral swelling [Unknown]
  - Cellulitis [Unknown]
  - Oropharyngeal pain [Unknown]
  - Crystal arthropathy [Unknown]
  - C-reactive protein increased [Unknown]
  - Lung disorder [Unknown]
